FAERS Safety Report 4351554-5 (Version None)
Quarter: 2004Q2

REPORT INFORMATION
  Report Type: 
  Country: None (occurrence: None)
  Receive Date: 20040503
  Receipt Date: 20030409
  Transmission Date: 20050107
  Serious: Yes (Death)
  Sender: FDA-Public Use
  Company Number: ES-MERCK-0304ESP00011

PATIENT
  Age: 36 Year
  Sex: Female

DRUGS (3)
  1. ACETAMINOPHEN [Concomitant]
     Indication: MIGRAINE
     Route: 048
  2. NAPROXEN [Concomitant]
     Indication: MIGRAINE
     Route: 048
  3. MAXALT [Suspect]
     Indication: MIGRAINE
     Route: 048
     Dates: start: 20020101, end: 20030408

REACTIONS (3)
  - ABORTION SPONTANEOUS [None]
  - COMPLICATIONS OF MATERNAL EXPOSURE TO THERAPEUTIC DRUGS [None]
  - DRUG EXPOSURE DURING PREGNANCY [None]
